FAERS Safety Report 21229320 (Version 2)
Quarter: 2023Q2

REPORT INFORMATION
  Report Type: Report from Study
  Country: DE (occurrence: DE)
  Receive Date: 20220818
  Receipt Date: 20230622
  Transmission Date: 20230722
  Serious: Yes (Hospitalization, Other)
  Sender: FDA-Public Use
  Company Number: DE-ABBVIE-22K-062-4505440-00

PATIENT
  Age: 66 Year
  Sex: Male
  Weight: 90 kg

DRUGS (10)
  1. SKYRIZI [Suspect]
     Active Substance: RISANKIZUMAB-RZAA
     Indication: Psoriasis
     Route: 058
     Dates: start: 20210423
  2. SUMATRIPTAN [Concomitant]
     Active Substance: SUMATRIPTAN
     Indication: Cluster headache
  3. INDOMETHACIN [Concomitant]
     Active Substance: INDOMETHACIN
     Indication: Cluster headache
     Dosage: TIME INTERVAL: 0.33333333 DAYS
  4. INDOMETHACIN [Concomitant]
     Active Substance: INDOMETHACIN
     Indication: Cluster headache
  5. VERAPAMIL [Concomitant]
     Active Substance: VERAPAMIL HYDROCHLORIDE
     Indication: Cluster headache
  6. TOPIRAMATE [Concomitant]
     Active Substance: TOPIRAMATE
     Indication: Prophylaxis
     Route: 048
     Dates: start: 202107, end: 20210712
  7. TOPIRAMATE [Concomitant]
     Active Substance: TOPIRAMATE
     Indication: Prophylaxis
     Route: 048
     Dates: start: 20210707, end: 202107
  8. CHOLECALCIFEROL [Concomitant]
     Active Substance: CHOLECALCIFEROL
     Indication: Product used for unknown indication
     Route: 048
  9. OXYGEN [Concomitant]
     Active Substance: OXYGEN
     Indication: Product used for unknown indication
     Dosage: 12L/MIN VIA MASK WITH RESERVOIR, 15-20MIN
     Route: 055
  10. OXYGEN [Concomitant]
     Active Substance: OXYGEN
     Indication: Product used for unknown indication
     Dosage: TIME INTERVAL: AS NECESSARY: 12L/MIN VIA MASK WITH RESERVOIR, 15-20MIN
     Route: 055

REACTIONS (2)
  - Cluster headache [Recovered/Resolved]
  - Drug abuse [Recovered/Resolved]

NARRATIVE: CASE EVENT DATE: 20210621
